FAERS Safety Report 17097661 (Version 2)
Quarter: 2019Q4

REPORT INFORMATION
  Report Type: Spontaneous
  Country: US (occurrence: US)
  Receive Date: 20191202
  Receipt Date: 20191203
  Transmission Date: 20200122
  Serious: No
  Sender: FDA-Public Use
  Company Number: US-ITALFARMACO SPA-2077352

PATIENT
  Age: 51 Year
  Sex: Female

DRUGS (7)
  1. COREG [Concomitant]
     Active Substance: CARVEDILOL
  2. TIGLUTIK [Suspect]
     Active Substance: RILUZOLE
     Indication: AMYOTROPHIC LATERAL SCLEROSIS
     Dates: start: 20190830
  3. CALCITRIOL. [Concomitant]
     Active Substance: CALCITRIOL
  4. LISINOPRIL. [Concomitant]
     Active Substance: LISINOPRIL
  5. CALCIUM + VITAMIN D [Concomitant]
     Active Substance: CALCIUM\VITAMIN D
  6. SYNTHROID [Concomitant]
     Active Substance: LEVOTHYROXINE SODIUM
  7. MELATONIN [Concomitant]
     Active Substance: MELATONIN

REACTIONS (3)
  - Vomiting [Unknown]
  - Product use issue [Unknown]
  - Off label use [Unknown]

NARRATIVE: CASE EVENT DATE: 20191021
